FAERS Safety Report 5481428-8 (Version None)
Quarter: 2007Q4

REPORT INFORMATION
  Report Type: 
  Country: None (occurrence: None)
  Receive Date: 20071010
  Receipt Date: 20071005
  Transmission Date: 20080405
  Serious: Yes (Other)
  Sender: FDA-Public Use
  Company Number: B0484176A

PATIENT
  Age: 43 Year
  Sex: Male
  Weight: 85.7 kg

DRUGS (2)
  1. BECOTIDE 250 [Suspect]
     Indication: DRUG USE FOR UNKNOWN INDICATION
     Dosage: 1PUFF TWICE PER DAY
     Route: 055
     Dates: start: 20070801
  2. VENTOLIN [Concomitant]

REACTIONS (2)
  - ASTHMA [None]
  - PHARMACEUTICAL PRODUCT COMPLAINT [None]
